FAERS Safety Report 22653086 (Version 1)
Quarter: 2023Q2

REPORT INFORMATION
  Report Type: Other
  Country: US (occurrence: None)
  Receive Date: 20230629
  Receipt Date: 20230629
  Transmission Date: 20230722
  Serious: No
  Sender: FDA-Public Use
  Company Number: US-ROCHE-3378790

PATIENT
  Age: 52 Year
  Sex: Female

DRUGS (3)
  1. OCREVUS [Suspect]
     Active Substance: OCRELIZUMAB
     Indication: Relapsing-remitting multiple sclerosis
     Dosage: THEN 600 MG EVERY 24 WEEKS, DATE OF TREATMENT: 26/FEB/2021, 13/AUG/2021, 18/FEB/2022, 05/AUG/2022, 1
     Route: 042
     Dates: start: 20200319
  2. FISH OIL [Concomitant]
     Active Substance: FISH OIL
  3. CRANBERRY [Concomitant]
     Active Substance: CRANBERRY

REACTIONS (2)
  - COVID-19 [Recovered/Resolved]
  - Cough [Not Recovered/Not Resolved]

NARRATIVE: CASE EVENT DATE: 20230301
